FAERS Safety Report 7082751-6 (Version None)
Quarter: 2010Q4

REPORT INFORMATION
  Report Type: 
  Country: None (occurrence: None)
  Receive Date: 20101026
  Receipt Date: 20100930
  Transmission Date: 20110411
  Serious: No
  Sender: FDA-Public Use
  Company Number: SPI201000252

PATIENT
  Age: 66 Year
  Sex: Female
  Weight: 52.2 kg

DRUGS (9)
  1. AMITIZA [Suspect]
     Indication: CONSTIPATION
     Dosage: 24 MCG, QD, ORAL, 8 MCG, BID, Q4H, ORAL, 8 MCG, TID, Q4H, ORAL
     Route: 048
     Dates: start: 20100927, end: 20101001
  2. AMITIZA [Suspect]
     Indication: IRRITABLE BOWEL SYNDROME
     Dosage: 24 MCG, QD, ORAL, 8 MCG, BID, Q4H, ORAL, 8 MCG, TID, Q4H, ORAL
     Route: 048
     Dates: start: 20100927, end: 20101001
  3. AMITIZA [Suspect]
     Indication: CONSTIPATION
     Dosage: 24 MCG, QD, ORAL, 8 MCG, BID, Q4H, ORAL, 8 MCG, TID, Q4H, ORAL
     Route: 048
     Dates: start: 20101001, end: 20101008
  4. AMITIZA [Suspect]
     Indication: IRRITABLE BOWEL SYNDROME
     Dosage: 24 MCG, QD, ORAL, 8 MCG, BID, Q4H, ORAL, 8 MCG, TID, Q4H, ORAL
     Route: 048
     Dates: start: 20101001, end: 20101008
  5. AMITIZA [Suspect]
     Indication: CONSTIPATION
     Dosage: 24 MCG, QD, ORAL, 8 MCG, BID, Q4H, ORAL, 8 MCG, TID, Q4H, ORAL
     Route: 048
     Dates: start: 20101008
  6. AMITIZA [Suspect]
     Indication: IRRITABLE BOWEL SYNDROME
     Dosage: 24 MCG, QD, ORAL, 8 MCG, BID, Q4H, ORAL, 8 MCG, TID, Q4H, ORAL
     Route: 048
     Dates: start: 20101008
  7. ESTROGENS SOL/INJ [Concomitant]
  8. VITAMINS [Concomitant]
  9. CALCIUM CITRATE (CALCIUM CITRATE) [Concomitant]

REACTIONS (9)
  - ASTHENIA [None]
  - CHEST DISCOMFORT [None]
  - DRUG EFFECT DECREASED [None]
  - DYSPNOEA [None]
  - FLUSHING [None]
  - INFLUENZA LIKE ILLNESS [None]
  - INFREQUENT BOWEL MOVEMENTS [None]
  - MYALGIA [None]
  - PAIN [None]
